FAERS Safety Report 5430174-5 (Version None)
Quarter: 2007Q3

REPORT INFORMATION
  Report Type: 
  Country: None (occurrence: None)
  Receive Date: 20070731
  Receipt Date: 20070510
  Transmission Date: 20080115
  Serious: No
  Sender: FDA-Public Use
  Company Number: US200705003117

PATIENT
  Age: 35 Year
  Sex: Male

DRUGS (4)
  1. BYETTA [Suspect]
     Dosage: 5 UG, 2/D, SUBCUTANEOUS; 5 UG, EACH MORNING, SUBCUTANEOUS; 10 UG, EACH EVENING, SUBCUTANEOUS
     Route: 058
     Dates: start: 20061001
  2. GLUCOVANCE [Concomitant]
  3. AVANDIA [Concomitant]
  4. LANTUS [Concomitant]

REACTIONS (4)
  - BLOOD GLUCOSE INCREASED [None]
  - DRUG INEFFECTIVE [None]
  - INCORRECT DOSE ADMINISTERED [None]
  - NAUSEA [None]
